FAERS Safety Report 9174115 (Version 1)
Quarter: 2013Q1

REPORT INFORMATION
  Report Type: Spontaneous
  Country: US (occurrence: None)
  Receive Date: 20130318
  Receipt Date: 20130318
  Transmission Date: 20140127
  Serious: Yes (Other)
  Sender: FDA-Public Use
  Company Number: None

PATIENT
  Age: 40 Year
  Sex: Male
  Weight: 117.94 kg

DRUGS (1)
  1. OPANA ER [Suspect]
     Indication: BACK PAIN
     Dosage: 40 MG 3 TIMES PO
     Route: 048
     Dates: start: 20130312, end: 20130314

REACTIONS (4)
  - Drug ineffective [None]
  - Abdominal discomfort [None]
  - Dyspepsia [None]
  - Product substitution issue [None]
